FAERS Safety Report 6864253-2 (Version None)
Quarter: 2010Q3

REPORT INFORMATION
  Report Type: 
  Country: None (occurrence: None)
  Receive Date: 20100721
  Receipt Date: 20100713
  Transmission Date: 20110219
  Serious: Yes (Disabling)
  Sender: FDA-Public Use
  Company Number: US-MERCK-1004USA01253

PATIENT
  Age: 66 Year
  Sex: Female
  Weight: 82 kg

DRUGS (3)
  1. FOSAMAX [Suspect]
     Indication: OSTEOPOROSIS
     Route: 048
     Dates: start: 20070306, end: 20070501
  2. HYDROCHLOROTHIAZIDE AND LISINOPRIL [Concomitant]
     Indication: HYPERTENSION
     Route: 065
     Dates: start: 19900101
  3. LEVOTHYROXINE SODIUM [Concomitant]
     Indication: HYPOTHYROIDISM
     Route: 048

REACTIONS (38)
  - ANAEMIA [None]
  - ANXIETY [None]
  - ARTHRALGIA [None]
  - ARTHROPATHY [None]
  - BONE MARROW OEDEMA [None]
  - BUNION [None]
  - CARDIAC DISORDER [None]
  - CARDIAC MURMUR [None]
  - DEPRESSION [None]
  - DEVICE FAILURE [None]
  - DIVERTICULUM [None]
  - DUODENITIS [None]
  - GASTRITIS [None]
  - GASTROOESOPHAGEAL REFLUX DISEASE [None]
  - HAEMORRHOIDS [None]
  - HIATUS HERNIA [None]
  - IMPAIRED HEALING [None]
  - INFLAMMATION [None]
  - IRON DEFICIENCY ANAEMIA [None]
  - JAW DISORDER [None]
  - MUSCLE ATROPHY [None]
  - MUSCLE SPASMS [None]
  - NODAL OSTEOARTHRITIS [None]
  - OEDEMA MOUTH [None]
  - OEDEMA PERIPHERAL [None]
  - OESOPHAGITIS [None]
  - OSTEOARTHRITIS [None]
  - OSTEONECROSIS OF JAW [None]
  - OSTEOPOROSIS [None]
  - PAIN [None]
  - PAIN IN EXTREMITY [None]
  - PATELLOFEMORAL PAIN SYNDROME [None]
  - PYREXIA [None]
  - SYNOVITIS [None]
  - TRISMUS [None]
  - VITAMIN B12 DEFICIENCY [None]
  - VITAMIN D DEFICIENCY [None]
  - WEIGHT DECREASED [None]
